FAERS Safety Report 23807806 (Version 1)
Quarter: 2024Q2

REPORT INFORMATION
  Report Type: Report from Study
  Country: US (occurrence: US)
  Receive Date: 20240502
  Receipt Date: 20240502
  Transmission Date: 20240716
  Serious: Yes (Other)
  Sender: FDA-Public Use
  Company Number: US-MYLANLABS-2024M1038735

PATIENT
  Age: 18 Year
  Sex: Female

DRUGS (12)
  1. IFOSFAMIDE [Suspect]
     Active Substance: IFOSFAMIDE
     Indication: Lymphoma
     Dosage: 75 G/M2 24 HOURS FOR 1 DAY
     Route: 065
  2. IFOSFAMIDE [Suspect]
     Active Substance: IFOSFAMIDE
     Indication: Lymphoma
  3. IFOSFAMIDE [Suspect]
     Active Substance: IFOSFAMIDE
     Indication: Renal cell carcinoma
  4. IFOSFAMIDE [Suspect]
     Active Substance: IFOSFAMIDE
     Indication: Nervous system neoplasm
  5. CARBOPLATIN [Suspect]
     Active Substance: CARBOPLATIN
     Indication: Lymphoma
     Dosage: UNK
     Route: 065
  6. CARBOPLATIN [Suspect]
     Active Substance: CARBOPLATIN
     Indication: Lymphoma
  7. CARBOPLATIN [Suspect]
     Active Substance: CARBOPLATIN
     Indication: Renal cell carcinoma
  8. CARBOPLATIN [Suspect]
     Active Substance: CARBOPLATIN
     Indication: Nervous system neoplasm
  9. ETOPOSIDE [Concomitant]
     Active Substance: ETOPOSIDE
     Indication: Lymphoma
     Dosage: UNK
     Route: 065
  10. ETOPOSIDE [Concomitant]
     Active Substance: ETOPOSIDE
     Indication: Lymphoma
  11. ETOPOSIDE [Concomitant]
     Active Substance: ETOPOSIDE
     Indication: Renal cell carcinoma
  12. ETOPOSIDE [Concomitant]
     Active Substance: ETOPOSIDE
     Indication: Nervous system neoplasm

REACTIONS (1)
  - Encephalopathy [Recovered/Resolved]
